FAERS Safety Report 12353996 (Version 1)
Quarter: 2016Q2

REPORT INFORMATION
  Report Type: Spontaneous
  Country: US (occurrence: None)
  Receive Date: 20160510
  Receipt Date: 20160510
  Transmission Date: 20160815
  Serious: Yes (Death)
  Sender: FDA-Public Use
  Company Number: None

PATIENT
  Sex: Female

DRUGS (1)
  1. PROLIA [Suspect]
     Active Substance: DENOSUMAB
     Indication: OSTEOPOROSIS
     Dosage: 60MG/ML SUBCUTANEOUSLY EVERY 6 MONTHS
     Route: 058
     Dates: start: 20140725

REACTIONS (2)
  - Cardiac operation [None]
  - Post procedural complication [None]

NARRATIVE: CASE EVENT DATE: 20151229
